FAERS Safety Report 8685015 (Version 3)
Quarter: 2012Q4

REPORT INFORMATION
  Report Type: 
  Country: US (occurrence: US)
  Receive Date: 20120726
  Receipt Date: 20120914
  Transmission Date: 20130627
  Serious: Yes (Hospitalization)
  Sender: FDA-Public Use
  Company Number: US-JNJFOC-20120710958

PATIENT
  Age: 57 Year
  Sex: Male
  Weight: 112.49 kg

DRUGS (4)
  1. REMICADE [Suspect]
     Indication: PSORIATIC ARTHROPATHY
     Route: 042
     Dates: start: 20060502, end: 20110207
  2. REMICADE [Suspect]
     Indication: PSORIASIS
     Route: 042
     Dates: start: 20060502, end: 20110207
  3. ZOCOR [Concomitant]
     Indication: LIPIDS ABNORMAL
     Route: 065
  4. LEXAPRO [Concomitant]
     Indication: ANTIDEPRESSANT THERAPY
     Route: 065

REACTIONS (1)
  - Cytomegalovirus infection [Recovered/Resolved with Sequelae]
